FAERS Safety Report 8272965-1 (Version None)
Quarter: 2012Q2

REPORT INFORMATION
  Report Type: 
  Country: None (occurrence: None)
  Receive Date: 20120411
  Receipt Date: 20120330
  Transmission Date: 20120825
  Serious: Yes (Hospitalization, Disabling)
  Sender: FDA-Public Use
  Company Number: FR-JNJFOC-20110909705

PATIENT
  Age: 74 Year
  Sex: Female

DRUGS (8)
  1. REMICADE [Suspect]
     Route: 042
     Dates: start: 20080415
  2. REMICADE [Suspect]
     Indication: COLITIS ULCERATIVE
     Route: 042
     Dates: start: 20080421
  3. REMICADE [Suspect]
     Route: 042
     Dates: start: 20080415
  4. FLAGYL [Suspect]
     Route: 065
     Dates: start: 19850101
  5. IMURAN [Suspect]
     Indication: ENTEROCOLITIS HAEMORRHAGIC
     Route: 065
     Dates: start: 20080415
  6. FLAGYL [Suspect]
     Indication: CLOSTRIDIAL INFECTION
     Route: 065
  7. REMICADE [Suspect]
     Indication: ENTEROCOLITIS HAEMORRHAGIC
     Route: 042
     Dates: start: 20080421
  8. HUMIRA [Suspect]
     Indication: ENTEROCOLITIS HAEMORRHAGIC
     Route: 065
     Dates: start: 20080528

REACTIONS (6)
  - PERIPHERAL SENSORIMOTOR NEUROPATHY [None]
  - CLOSTRIDIAL INFECTION [None]
  - PANCREATITIS [None]
  - DIPLOPIA [None]
  - TREATMENT FAILURE [None]
  - BACK PAIN [None]
